FAERS Safety Report 4868151-5 (Version None)
Quarter: 2005Q4

REPORT INFORMATION
  Report Type: 
  Country: None (occurrence: None)
  Receive Date: 20051229
  Receipt Date: 20051207
  Transmission Date: 20060501
  Serious: Yes (Other)
  Sender: FDA-Public Use
  Company Number: PHNU2005DE04038

PATIENT
  Age: 48 Year
  Sex: Female
  Weight: 44 kg

DRUGS (3)
  1. ZOMETA [Suspect]
     Indication: METASTASES TO BONE
     Dosage: 4 MG, QMO
     Route: 042
     Dates: start: 20030717
  2. TAXOTERE [Concomitant]
     Indication: BREAST CANCER METASTATIC
     Dosage: 35 MG/M2, QW
     Route: 065
     Dates: start: 20050414, end: 20050712
  3. DEXAMETHASONE [Concomitant]
     Dosage: 20 MG, QW
     Route: 065
     Dates: start: 20050414, end: 20050712

REACTIONS (1)
  - OSTEONECROSIS [None]
